FAERS Safety Report 21527085 (Version 1)
Quarter: 2022Q4

REPORT INFORMATION
  Report Type: Report from Study
  Country: CA (occurrence: CA)
  Receive Date: 20221031
  Receipt Date: 20221031
  Transmission Date: 20230112
  Serious: Yes (Death, Hospitalization)
  Sender: FDA-Public Use
  Company Number: CA-JNJFOC-20210448229

PATIENT
  Age: 64 Year
  Sex: Male

DRUGS (1)
  1. ZYTIGA [Suspect]
     Active Substance: ABIRATERONE ACETATE
     Indication: Prostate cancer metastatic
     Dosage: 500MG 2 TABLETS PER DAY?EXPIRY DATE: 31-OCT-2023
     Route: 048
     Dates: start: 20210122

REACTIONS (3)
  - Death [Fatal]
  - Colon cancer [Recovering/Resolving]
  - General physical condition abnormal [Unknown]

NARRATIVE: CASE EVENT DATE: 20221001
